FAERS Safety Report 15395022 (Version 1)
Quarter: 2018Q3

REPORT INFORMATION
  Report Type: Spontaneous
  Country: US (occurrence: US)
  Receive Date: 20180911
  Receipt Date: 20180911
  Transmission Date: 20181010
  Serious: No
  Sender: FDA-Public Use
  Company Number: None

PATIENT
  Age: 65 Year
  Sex: Female
  Weight: 49.9 kg

DRUGS (4)
  1. FORTEO [Suspect]
     Active Substance: TERIPARATIDE
     Indication: PAIN
     Dosage: AS DIRECTED
     Route: 058
     Dates: start: 201712
  2. FORTEO [Suspect]
     Active Substance: TERIPARATIDE
     Indication: MYELOPATHY
     Dosage: AS DIRECTED
     Route: 058
     Dates: start: 201712
  3. FORTEO [Suspect]
     Active Substance: TERIPARATIDE
     Indication: ARTHROPATHY
     Dosage: AS DIRECTED
     Route: 058
     Dates: start: 201712
  4. FORTEO [Suspect]
     Active Substance: TERIPARATIDE
     Indication: INTERVERTEBRAL DISC DEGENERATION
     Dosage: AS DIRECTED
     Route: 058
     Dates: start: 201712

REACTIONS (2)
  - Accident [None]
  - Fall [None]
